FAERS Safety Report 25611793 (Version 1)
Quarter: 2025Q3

REPORT INFORMATION
  Report Type: Report from Study
  Country: US (occurrence: US)
  Receive Date: 20250728
  Receipt Date: 20250728
  Transmission Date: 20251021
  Serious: Yes (Other)
  Sender: ALEXION PHARMACEUTICALS
  Company Number: US-AstraZeneca-CH-00917719A

PATIENT
  Sex: Female
  Weight: 53.977 kg

DRUGS (13)
  1. CAPIVASERTIB [Suspect]
     Active Substance: CAPIVASERTIB
     Route: 065
  2. ATORVASTATIN CALCIUM [Concomitant]
     Active Substance: ATORVASTATIN CALCIUM
     Route: 065
  3. ATROPINE [Concomitant]
     Active Substance: ATROPINE
     Route: 065
  4. DIPHENOXYLATE [Concomitant]
     Active Substance: DIPHENOXYLATE
     Route: 065
  5. FUROSEMIDE [Concomitant]
     Active Substance: FUROSEMIDE
     Route: 065
  6. GABAPENTIN [Concomitant]
     Active Substance: GABAPENTIN
     Route: 065
  7. LOSARTAN POTASSIUM [Concomitant]
     Active Substance: LOSARTAN POTASSIUM
     Route: 065
  8. METOPROLOL SUCCINATE [Concomitant]
     Active Substance: METOPROLOL SUCCINATE
     Route: 065
  9. POTASSIUM CHLORIDE [Concomitant]
     Active Substance: POTASSIUM CHLORIDE
     Route: 065
  10. VITAMIN D3 [Concomitant]
     Active Substance: CHOLECALCIFEROL
     Route: 065
  11. VITAMINS [Concomitant]
     Active Substance: VITAMINS
     Route: 065
  12. CALCIUM [Concomitant]
     Active Substance: CALCIUM
  13. SYNTHROID [Concomitant]
     Active Substance: LEVOTHYROXINE SODIUM

REACTIONS (1)
  - Disease progression [Unknown]
